FAERS Safety Report 8620464-7 (Version None)
Quarter: 2012Q3

REPORT INFORMATION
  Report Type: 
  Country: None (occurrence: None)
  Receive Date: 20120824
  Receipt Date: 20120821
  Transmission Date: 20120928
  Serious: No
  Sender: FDA-Public Use
  Company Number: US-PFIZER INC-2012206404

PATIENT
  Age: 51 Year
  Sex: Female
  Weight: 52.154 kg

DRUGS (2)
  1. TEMAZEPAM [Concomitant]
     Indication: SLEEP DISORDER
     Dosage: 30MG OR 60MG, AS NEEDED
  2. LYRICA [Suspect]
     Indication: FIBROMYALGIA
     Dosage: UNK
     Dates: end: 20110901

REACTIONS (3)
  - CHILLS [None]
  - PYREXIA [None]
  - INSOMNIA [None]
